FAERS Safety Report 5978170-3 (Version None)
Quarter: 2008Q4

REPORT INFORMATION
  Report Type: 
  Country: None (occurrence: None)
  Receive Date: 20081126
  Receipt Date: 20081112
  Transmission Date: 20090506
  Serious: Yes (Other)
  Sender: FDA-Public Use
  Company Number: KV200800240

PATIENT
  Age: 56 Year
  Sex: Male
  Weight: 86.2 kg

DRUGS (10)
  1. ISOSORBIDE MONONITRATE [Suspect]
     Indication: CHEST PAIN
     Dosage: 30 MG, QD, ORAL
     Route: 048
     Dates: start: 20070601
  2. PLAVIX [Concomitant]
  3. METHOTREXATE [Concomitant]
  4. FOLIC ACID [Concomitant]
  5. CRESTOR [Concomitant]
  6. HYDROCODONE (HYDROCODONE) [Concomitant]
  7. ENABLEX (DARIFENACIN) [Concomitant]
  8. TRAMADOL HCL [Concomitant]
  9. LISINOPRIL [Concomitant]
  10. AMLODIPINE [Concomitant]

REACTIONS (4)
  - CHEST PAIN [None]
  - DIZZINESS [None]
  - DYSPNOEA [None]
  - PRODUCT QUALITY ISSUE [None]
